FAERS Safety Report 12704945 (Version 3)
Quarter: 2019Q1

REPORT INFORMATION
  Report Type: Spontaneous
  Country: AR (occurrence: AR)
  Receive Date: 20160831
  Receipt Date: 20190131
  Transmission Date: 20190417
  Serious: Yes (Hospitalization, Other)
  Sender: FDA-Public Use
  Company Number: AR-SA-2016SA158889

PATIENT
  Age: 64 Year
  Sex: Male
  Weight: 88 kg

DRUGS (6)
  1. CALCIUM CITRATE [Concomitant]
     Active Substance: CALCIUM CITRATE
     Dosage: 630 MG,UNK
     Route: 065
  2. CALCITRIOL. [Concomitant]
     Active Substance: CALCITRIOL
     Dosage: .75 UG,QD
     Route: 065
  3. LOPERAMIDE [Concomitant]
     Active Substance: LOPERAMIDE
     Dosage: 1 DF,PRN
     Route: 065
  4. CAPRELSA [Suspect]
     Active Substance: VANDETANIB
     Indication: MEDULLARY THYROID CANCER
     Dosage: 300 MG,QD
     Route: 048
     Dates: start: 20150413, end: 20160729
  5. LT4 [Concomitant]
     Dosage: 175 UG,QD
     Route: 065
  6. SORAFENIB [Suspect]
     Active Substance: SORAFENIB
     Dosage: 800 MG, QD

REACTIONS (7)
  - Rash [Recovered/Resolved]
  - Dysphonia [Unknown]
  - Squamous cell carcinoma of skin [Recovered/Resolved]
  - Diverticulitis [Unknown]
  - Large intestine perforation [Unknown]
  - Diarrhoea [Recovered/Resolved]
  - Lymphadenopathy [Unknown]

NARRATIVE: CASE EVENT DATE: 20160720
